FAERS Safety Report 11806453 (Version 1)
Quarter: 2015Q4

REPORT INFORMATION
  Report Type: Spontaneous
  Country: CN (occurrence: CN)
  Receive Date: 20151207
  Receipt Date: 20151207
  Transmission Date: 20160305
  Serious: No
  Sender: FDA-Public Use
  Company Number: CN-TAKEDA-2015TJP022513

PATIENT

DRUGS (1)
  1. TAKEPRON [Suspect]
     Active Substance: LANSOPRAZOLE
     Indication: COLITIS ULCERATIVE
     Dosage: UNK
     Route: 048
     Dates: start: 201511, end: 201511

REACTIONS (1)
  - Vision blurred [Unknown]
